FAERS Safety Report 6865944-X (Version None)
Quarter: 2010Q3

REPORT INFORMATION
  Report Type: 
  Country: None (occurrence: None)
  Receive Date: 20100719
  Receipt Date: 20100708
  Transmission Date: 20110219
  Serious: Yes (Hospitalization)
  Sender: FDA-Public Use
  Company Number: 7010716

PATIENT
  Sex: Female

DRUGS (7)
  1. REBIF [Suspect]
     Indication: RELAPSING-REMITTING MULTIPLE SCLEROSIS
     Dosage: 22 MCG, 3 IN 1 WK, SUBCUTANEOUS
     Route: 058
     Dates: start: 20020101
  2. PURAN T4 (LEVOTHYROXINE) (LEVOTHYROXINE SODIUM) [Concomitant]
  3. ASPIRIN [Concomitant]
  4. VASOGARD (CILOSTASOL) (CILOSTAZOL) [Concomitant]
  5. OMEPRAZOLE [Concomitant]
  6. METFORMIN HCL [Concomitant]
  7. RETEMIC (OXYBUTYNIN HYDROCHLORIDE) [Concomitant]

REACTIONS (11)
  - BACK PAIN [None]
  - CELLULITIS [None]
  - GAIT DISTURBANCE [None]
  - HERNIA [None]
  - HYPOAESTHESIA [None]
  - MEMORY IMPAIRMENT [None]
  - NERVE COMPRESSION [None]
  - OEDEMA PERIPHERAL [None]
  - PARAESTHESIA [None]
  - POLLAKIURIA [None]
  - SPEECH DISORDER [None]
